FAERS Safety Report 7671493-1 (Version None)
Quarter: 2011Q3

REPORT INFORMATION
  Report Type: 
  Country: None (occurrence: None)
  Receive Date: 20110809
  Receipt Date: 20110802
  Transmission Date: 20111222
  Serious: Yes (Other)
  Sender: FDA-Public Use
  Company Number: US-AMGEN-USASP2011039268

PATIENT
  Age: 76 Year
  Sex: Female

DRUGS (4)
  1. ANTIDEPRESSANTS [Concomitant]
  2. VITAMIN D [Concomitant]
  3. CALCIUM CARBONATE [Concomitant]
  4. PROLIA [Suspect]
     Indication: OSTEOPOROSIS POSTMENOPAUSAL
     Dosage: 60 MG, Q6MO
     Dates: start: 20110201

REACTIONS (2)
  - LOOSE TOOTH [None]
  - ECZEMA [None]
